FAERS Safety Report 6219231-3 (Version None)
Quarter: 2009Q2

REPORT INFORMATION
  Report Type: 
  Country: None (occurrence: None)
  Receive Date: 20090605
  Receipt Date: 20090605
  Transmission Date: 20091009
  Serious: No
  Sender: FDA-Public Use
  Company Number: None

PATIENT
  Age: 42 Year
  Sex: Female
  Weight: 86.1834 kg

DRUGS (2)
  1. CYMBALTA [Suspect]
     Indication: DEPRESSION
     Dosage: 60 MG DAILY PO
     Route: 048
     Dates: start: 20071201, end: 20090522
  2. CYMBALTA [Suspect]
     Dosage: 30 MG DAILY PO
     Route: 048
     Dates: start: 20090523, end: 20090604

REACTIONS (13)
  - AMNESIA [None]
  - CONFUSIONAL STATE [None]
  - DIARRHOEA [None]
  - HEADACHE [None]
  - IMPAIRED WORK ABILITY [None]
  - INSOMNIA [None]
  - IRRITABILITY [None]
  - NAUSEA [None]
  - PARAESTHESIA [None]
  - SOCIAL PROBLEM [None]
  - SUICIDAL IDEATION [None]
  - VERTIGO [None]
  - WITHDRAWAL SYNDROME [None]
